FAERS Safety Report 9785052 (Version 4)
Quarter: 2014Q3

REPORT INFORMATION
  Report Type: Report from Study
  Country: JP (occurrence: JP)
  Receive Date: 20131227
  Receipt Date: 20140707
  Transmission Date: 20150326
  Serious: Yes (Other)
  Sender: FDA-Public Use
  Company Number: JP-AMGEN-JPNCT2013090841

PATIENT
  Age: 88 Year
  Sex: Male
  Weight: 64 kg

DRUGS (7)
  1. DENOSUMAB [Suspect]
     Active Substance: DENOSUMAB
     Indication: METASTASES TO BONE
     Dosage: 120 MG, UNK
     Route: 058
     Dates: start: 20121012, end: 20130614
  2. TAMSULOSIN HYDROCHLORIDE. [Concomitant]
     Active Substance: TAMSULOSIN HYDROCHLORIDE
     Dosage: 0.2 MG, QD
     Route: 048
     Dates: start: 20120817
  3. JUSO [Concomitant]
     Dosage: 4 G, QD
     Route: 048
     Dates: start: 20110729
  4. ZOMETA [Concomitant]
     Active Substance: ZOLEDRONIC ACID
     Indication: METASTASES TO BONE
     Dosage: 3 MG, QD
     Route: 042
     Dates: start: 20110517, end: 20120914
  5. NEXAVAR [Concomitant]
     Active Substance: SORAFENIB
     Indication: METASTASES TO BONE
     Dosage: UNK
     Route: 065
     Dates: start: 20110325, end: 20140109
  6. CALCICHEW D3 [Concomitant]
     Active Substance: CALCIUM\CHOLECALCIFEROL
     Dosage: 500 MG, QD
     Route: 048
     Dates: start: 20130104, end: 20130711
  7. MELOXICAM. [Concomitant]
     Active Substance: MELOXICAM
     Dosage: 10 MG, QD
     Route: 048
     Dates: start: 20110405

REACTIONS (1)
  - Osteonecrosis of jaw [Recovering/Resolving]

NARRATIVE: CASE EVENT DATE: 20130627
